FAERS Safety Report 6843855-3 (Version None)
Quarter: 2010Q3

REPORT INFORMATION
  Report Type: 
  Country: None (occurrence: None)
  Receive Date: 20100715
  Receipt Date: 20100702
  Transmission Date: 20110219
  Serious: Yes (Hospitalization)
  Sender: FDA-Public Use
  Company Number: PHHY2010ES36633

PATIENT
  Age: 78 Year
  Sex: Female

DRUGS (3)
  1. EXJADE [Suspect]
     Indication: MYELODYSPLASTIC SYNDROME
     Dosage: UNK
     Route: 048
     Dates: start: 20081101, end: 20100330
  2. METFORMIN HCL [Concomitant]
  3. OMEPRAZOLE [Concomitant]

REACTIONS (3)
  - CARDIAC FAILURE [None]
  - HAEMOLYTIC ANAEMIA [None]
  - JAUNDICE [None]
